FAERS Safety Report 6163744-X (Version None)
Quarter: 2009Q2

REPORT INFORMATION
  Report Type: 
  Country: None (occurrence: None)
  Receive Date: 20090420
  Receipt Date: 20090420
  Transmission Date: 20091009
  Serious: Yes (Life-Threatening, Hospitalization)
  Sender: FDA-Public Use
  Company Number: None

PATIENT
  Age: 86 Year
  Sex: Female

DRUGS (8)
  1. AZTREONAM [Suspect]
     Indication: URINARY TRACT INFECTION
     Dosage: 500MG IV Q12 HOURS
     Route: 042
     Dates: start: 20080811, end: 20080821
  2. SURFAK [Concomitant]
  3. AMIODARONE [Concomitant]
  4. ASPIRIN [Concomitant]
  5. LEVOTHYROXINE SODIUM [Concomitant]
  6. LIPITOR [Concomitant]
  7. RAZADYNE [Concomitant]
  8. VALIUM [Concomitant]

REACTIONS (1)
  - ANAPHYLACTIC REACTION [None]
